FAERS Safety Report 9738832 (Version 1)
Quarter: 2013Q4

REPORT INFORMATION
  Report Type: Spontaneous
  Country: US (occurrence: US)
  Receive Date: 20131209
  Receipt Date: 20131209
  Transmission Date: 20140711
  Serious: No
  Sender: FDA-Public Use
  Company Number: US-PFIZER INC-2013351032

PATIENT
  Age: 59 Year
  Sex: Female
  Weight: 78.46 kg

DRUGS (8)
  1. EFFEXOR XR [Suspect]
     Indication: DEPRESSION
     Dosage: 225 MG (3 CAPSULES OF 75MG), 1X/DAY
     Route: 048
     Dates: end: 201311
  2. LEVOTHYROXINE [Concomitant]
     Indication: HYPOTHYROIDISM
     Dosage: UNK, 1X/DAY
     Route: 048
     Dates: end: 201310
  3. LEVOTHYROXINE [Concomitant]
     Dosage: 125 UG, 1X/DAY
     Route: 048
     Dates: start: 201310
  4. METFORMIN [Concomitant]
     Indication: DIABETES MELLITUS
     Dosage: 1000 MG, 1X/DAY
  5. VICTOZA [Concomitant]
     Indication: DIABETES MELLITUS
     Dosage: UNK
  6. BUSPIRONE [Concomitant]
     Indication: ANXIETY
     Dosage: UNK
  7. ATENOLOL [Concomitant]
     Indication: HYPERTENSION
     Dosage: UNK
  8. CRESTOR [Concomitant]
     Indication: BLOOD CHOLESTEROL INCREASED
     Dosage: UNK

REACTIONS (2)
  - Depressed mood [Not Recovered/Not Resolved]
  - Crying [Not Recovered/Not Resolved]
